FAERS Safety Report 12985820 (Version 6)
Quarter: 2017Q3

REPORT INFORMATION
  Report Type: Spontaneous
  Country: KR (occurrence: KR)
  Receive Date: 20161130
  Receipt Date: 20170824
  Transmission Date: 20171127
  Serious: Yes (Other)
  Sender: FDA-Public Use
  Company Number: KR-009507513-1611KOR012766

PATIENT
  Age: 81 Year
  Sex: Female
  Weight: 60.5 kg

DRUGS (35)
  1. EMEND (FOSAPREPITANT DIMEGLUMINE) [Suspect]
     Active Substance: FOSAPREPITANT DIMEGLUMINE
     Dosage: 150 MG, ONCE
     Route: 042
     Dates: start: 20160819, end: 20160819
  2. MABTHERA [Concomitant]
     Active Substance: RITUXIMAB
     Dosage: 611 MG, ONCE, CYCLE 5
     Route: 042
     Dates: start: 20160819, end: 20160819
  3. VINCRISTINE SULFATE. [Concomitant]
     Active Substance: VINCRISTINE SULFATE
     Dosage: 1.7 MG, ONCE, CYCLE 5
     Route: 042
     Dates: start: 20160819, end: 20160819
  4. ALOXI [Concomitant]
     Active Substance: PALONOSETRON HYDROCHLORIDE
     Indication: PROPHYLAXIS OF NAUSEA AND VOMITING
     Dosage: 5 ML, ONCE
     Route: 042
     Dates: start: 20160726, end: 20160726
  5. CURAN [Concomitant]
     Active Substance: RANITIDINE HYDROCHLORIDE
     Indication: PROPHYLAXIS
     Dosage: 150 MG (1 TABLET), BID
     Route: 048
     Dates: start: 20160726, end: 20160730
  6. CHLORPHENIRAMINE MALEATE. [Concomitant]
     Active Substance: CHLORPHENIRAMINE MALEATE
     Dosage: 4 MG, BID
     Route: 042
     Dates: start: 20160819, end: 20160819
  7. ASPIRIN PROTECT [Concomitant]
     Active Substance: ASPIRIN
     Indication: CEREBRAL INFARCTION
     Dosage: 100 MG (1 TABLET), QD
     Route: 048
     Dates: start: 2011
  8. DICHLOZID [Concomitant]
     Indication: HYPERTENSION
     Dosage: 12.5 MG, QD
     Route: 048
     Dates: start: 2011
  9. NEURONTIN [Concomitant]
     Active Substance: GABAPENTIN
     Indication: NEUROPATHY PERIPHERAL
     Dosage: 300 MG, TID
     Route: 048
     Dates: start: 20160726, end: 20161007
  10. DOXORUBIN [Concomitant]
     Active Substance: DOXORUBICIN
     Indication: LYMPHOMA
     Dosage: STRENGTH: 0.2% 25 ML; 59 MG, ONCE, CYCLE 4
     Route: 042
     Dates: start: 20160726, end: 20160726
  11. DOXORUBIN [Concomitant]
     Active Substance: DOXORUBICIN
     Dosage: STRENGTH: 0.2% 25 ML; 60 MG, ONCE, CYCLE 6
     Route: 042
     Dates: start: 20160908, end: 20160908
  12. ENDOXAN [Concomitant]
     Active Substance: CYCLOPHOSPHAMIDE
     Indication: LYMPHOMA
     Dosage: 670 MG, ONCE, CYCLE 4
     Route: 042
     Dates: start: 20160726, end: 20160726
  13. ENDOXAN [Concomitant]
     Active Substance: CYCLOPHOSPHAMIDE
     Dosage: 679 MG, ONCE, CYCLE 6
     Route: 042
     Dates: start: 20160908, end: 20160908
  14. TWYNSTA [Concomitant]
     Active Substance: AMLODIPINE BESYLATE\TELMISARTAN
     Indication: HYPERTENSION
     Dosage: 1 TABLET, QD
     Route: 048
     Dates: start: 2011
  15. ALOXI [Concomitant]
     Active Substance: PALONOSETRON HYDROCHLORIDE
     Dosage: 5 ML, ONCE
     Route: 042
     Dates: start: 20160908, end: 20160908
  16. TYLENOL EXTENDED RELIEF CAPLETS [Concomitant]
     Active Substance: ACETAMINOPHEN
     Indication: PROPHYLAXIS
     Dosage: 650 MG, ONCE
     Route: 048
     Dates: start: 20160726, end: 20160726
  17. EMEND (FOSAPREPITANT DIMEGLUMINE) [Suspect]
     Active Substance: FOSAPREPITANT DIMEGLUMINE
     Dosage: 150 MG, ONCE
     Route: 042
     Dates: start: 20160908, end: 20160908
  18. MABTHERA [Concomitant]
     Active Substance: RITUXIMAB
     Dosage: 603 MG, ONCE, CYCLE 6
     Route: 042
     Dates: start: 20160908, end: 20160908
  19. VINCRISTINE SULFATE. [Concomitant]
     Active Substance: VINCRISTINE SULFATE
     Indication: LYMPHOMA
     Dosage: 1.6 MG, ONCE, CYCLE 4
     Route: 042
     Dates: start: 20160726, end: 20160726
  20. BONALING A [Concomitant]
     Indication: PROPHYLAXIS
     Dosage: 1 TABLET, QD
     Route: 048
     Dates: start: 2011
  21. ENDOXAN [Concomitant]
     Active Substance: CYCLOPHOSPHAMIDE
     Dosage: 688 MG, ONCE, CYCLE 5
     Route: 042
     Dates: start: 20160819, end: 20160819
  22. SOLONDO [Concomitant]
     Active Substance: PREDNISOLONE
     Dosage: 50 MG, BID
     Route: 048
     Dates: start: 20160908, end: 20160912
  23. ALOXI [Concomitant]
     Active Substance: PALONOSETRON HYDROCHLORIDE
     Dosage: 5 ML, ONCE
     Route: 042
     Dates: start: 20160819, end: 20160819
  24. CURAN [Concomitant]
     Active Substance: RANITIDINE HYDROCHLORIDE
     Dosage: 150 MG (1 TABLET), BID
     Route: 048
     Dates: start: 20160819, end: 20160823
  25. CHLORPHENIRAMINE MALEATE. [Concomitant]
     Active Substance: CHLORPHENIRAMINE MALEATE
     Indication: PROPHYLAXIS
     Dosage: 4 MG, ONCE
     Route: 042
     Dates: start: 20160726, end: 20160726
  26. EMEND (FOSAPREPITANT DIMEGLUMINE) [Suspect]
     Active Substance: FOSAPREPITANT DIMEGLUMINE
     Indication: PROPHYLAXIS OF NAUSEA AND VOMITING
     Dosage: 150 MG, ONCE
     Route: 042
     Dates: start: 20160726, end: 20160726
  27. DOXORUBIN [Concomitant]
     Active Substance: DOXORUBICIN
     Dosage: STRENGTH: 0.2% 25 ML; 61 MG, ONCE, CYCLE 5
     Route: 042
     Dates: start: 20160819, end: 20160819
  28. SOLONDO [Concomitant]
     Active Substance: PREDNISOLONE
     Indication: LYMPHOMA
     Dosage: 50 MG, BID
     Route: 048
     Dates: start: 20160726, end: 20160730
  29. DIAZEPAM. [Concomitant]
     Active Substance: DIAZEPAM
     Indication: PROPHYLAXIS
     Dosage: 0.5 TABLET, QD
     Route: 048
     Dates: start: 2011
  30. SOLONDO [Concomitant]
     Active Substance: PREDNISOLONE
     Indication: PROPHYLAXIS OF NAUSEA AND VOMITING
     Dosage: 50 MG, BID
     Route: 048
     Dates: start: 20160819, end: 20160823
  31. GINKGO [Concomitant]
     Active Substance: GINKGO
     Indication: CEREBRAL INFARCTION
     Dosage: 80 MG (1 TABLET), QD
     Route: 048
     Dates: start: 2011
  32. MABTHERA [Concomitant]
     Active Substance: RITUXIMAB
     Indication: LYMPHOMA
     Dosage: 596 MG, ONCE, CYCLE 4
     Route: 042
     Dates: start: 20160726, end: 20160726
  33. VINCRISTINE SULFATE. [Concomitant]
     Active Substance: VINCRISTINE SULFATE
     Dosage: 1.69 MG, ONCE, CYCLE 6
     Route: 042
     Dates: start: 20160908, end: 20160908
  34. MEGACE F [Concomitant]
     Indication: PROPHYLAXIS
     Dosage: 5 ML, QD
     Route: 048
     Dates: start: 20160726, end: 20160816
  35. TYLENOL EXTENDED RELIEF CAPLETS [Concomitant]
     Active Substance: ACETAMINOPHEN
     Dosage: 650 MG, TID
     Route: 048
     Dates: start: 20160819, end: 20160819

REACTIONS (1)
  - Urinary tract infection [Recovered/Resolved]

NARRATIVE: CASE EVENT DATE: 20160820
